FAERS Safety Report 7379046-X (Version None)
Quarter: 2011Q1

REPORT INFORMATION
  Report Type: 
  Country: None (occurrence: None)
  Receive Date: 20110328
  Receipt Date: 20110318
  Transmission Date: 20110831
  Serious: Yes (Hospitalization)
  Sender: FDA-Public Use
  Company Number: JP-ROCHE-758701

PATIENT
  Sex: Male
  Weight: 57 kg

DRUGS (4)
  1. PACLITAXEL [Suspect]
     Indication: LUNG ADENOCARCINOMA METASTATIC
     Dosage: DOSAGE IS UNCERTAIN
     Route: 041
     Dates: start: 20100610
  2. CARBOPLATIN [Suspect]
     Indication: LUNG ADENOCARCINOMA METASTATIC
     Dosage: DOSAGE UNCERTAIN
     Route: 041
  3. AVASTIN [Suspect]
     Indication: LUNG ADENOCARCINOMA METASTATIC
     Route: 041
     Dates: start: 20100610
  4. AVASTIN [Suspect]
     Route: 041
     Dates: start: 20100618, end: 20101216

REACTIONS (3)
  - INTERSTITIAL LUNG DISEASE [None]
  - HYPOXIA [None]
  - PNEUMOTHORAX [None]
